FAERS Safety Report 21615952 (Version 1)
Quarter: 2022Q4

REPORT INFORMATION
  Report Type: Spontaneous
  Country: CN (occurrence: CN)
  Receive Date: 20221118
  Receipt Date: 20221118
  Transmission Date: 20230113
  Serious: Yes (Hospitalization, Other)
  Sender: FDA-Public Use
  Company Number: CN-GLAXOSMITHKLINE-CN2022APC168685

PATIENT

DRUGS (3)
  1. LAMOTRIGINE [Suspect]
     Active Substance: LAMOTRIGINE
     Indication: Product used for unknown indication
     Dosage: 1 DF, BID UNK, BID 1 TABLET 1 DAY
     Route: 048
     Dates: start: 20221001, end: 20221027
  2. RIBAVIRIN [Suspect]
     Active Substance: RIBAVIRIN
     Indication: Antiviral treatment
     Dosage: UNK
     Dates: start: 202210
  3. VALPROATE SODIUM [Suspect]
     Active Substance: VALPROATE SODIUM
     Indication: Product used for unknown indication
     Dosage: 1 DF, BID UNK, BID 1 TABLET 1 DAY
     Route: 048
     Dates: start: 20221001, end: 20221112

REACTIONS (6)
  - Cerebral infarction [Recovering/Resolving]
  - Rash [Recovering/Resolving]
  - Rash erythematous [Recovering/Resolving]
  - Pyrexia [Recovering/Resolving]
  - Infection [Recovering/Resolving]
  - Pruritus [Recovering/Resolving]

NARRATIVE: CASE EVENT DATE: 20221001
